FAERS Safety Report 8072803-6 (Version None)
Quarter: 2012Q1

REPORT INFORMATION
  Report Type: 
  Country: None (occurrence: None)
  Receive Date: 20120126
  Receipt Date: 20120113
  Transmission Date: 20120608
  Serious: Yes (Other)
  Sender: FDA-Public Use
  Company Number: IT-JNJFOC-20110601252

PATIENT
  Age: 4 Year
  Sex: Female

DRUGS (5)
  1. SANDIMMUNE [Concomitant]
     Route: 048
  2. CHLOR-TRIMETON [Concomitant]
     Indication: PREMEDICATION
     Route: 042
  3. PREDNISONE TAB [Concomitant]
     Route: 048
  4. REMICADE [Suspect]
     Indication: UVEITIS
     Route: 042
     Dates: start: 20110526, end: 20110526
  5. SOLU-MEDROL [Concomitant]
     Indication: PREMEDICATION
     Route: 042

REACTIONS (7)
  - OXYGEN SATURATION DECREASED [None]
  - RETCHING [None]
  - INFUSION RELATED REACTION [None]
  - BODY TEMPERATURE DECREASED [None]
  - ABDOMINAL PAIN [None]
  - ERYTHEMA [None]
  - HEART RATE INCREASED [None]
